FAERS Safety Report 7367591-2 (Version None)
Quarter: 2011Q1

REPORT INFORMATION
  Report Type: 
  Country: None (occurrence: None)
  Receive Date: 20110314
  Receipt Date: 20110308
  Transmission Date: 20110831
  Serious: Yes (Other)
  Sender: FDA-Public Use
  Company Number: DSA_45139_2011

PATIENT
  Age: 42 Year
  Sex: Male

DRUGS (3)
  1. MONO-TILDIEM (MONO-TILDIEM - DILTIAZEM HYDROCHLORIDE MODIFIED-RELEASE [Suspect]
     Indication: PRODUCT USED FOR UNKNOWN INDICATION
     Dosage: 200 MG, FREQUENCY UNKNOWN ORAL
     Route: 048
  2. VALERIANA OFFICINALIS ROOT DRY EXTRACT (VALERIANE) [Suspect]
     Indication: PRODUCT USED FOR UNKNOWN INDICATION
     Dosage: DF ORAL
     Route: 048
     Dates: start: 20101201
  3. PLAVIX [Suspect]
     Indication: PRODUCT USED FOR UNKNOWN INDICATION
     Dosage: DF

REACTIONS (3)
  - TONGUE DISCOLOURATION [None]
  - DRUG INTERACTION [None]
  - PHARYNGEAL DISORDER [None]
